FAERS Safety Report 14911233 (Version 2)
Quarter: 2018Q2

REPORT INFORMATION
  Report Type: Spontaneous
  Country: US (occurrence: US)
  Receive Date: 20180518
  Receipt Date: 20180521
  Transmission Date: 20180711
  Serious: No
  Sender: FDA-Public Use
  Company Number: US-JNJFOC-20180434012

PATIENT
  Age: 57 Year
  Sex: Male
  Weight: 77.11 kg

DRUGS (3)
  1. KETOCONAZOLE 2% [Concomitant]
     Active Substance: KETOCONAZOLE
     Indication: ALOPECIA
     Route: 061
  2. MENS ROGAINE EXTRA STRENGTH [Suspect]
     Active Substance: MINOXIDIL
     Route: 061
  3. MENS ROGAINE EXTRA STRENGTH [Suspect]
     Active Substance: MINOXIDIL
     Indication: ALOPECIA
     Dosage: MORE THAN A CAPFUL
     Route: 061
     Dates: start: 20180207

REACTIONS (3)
  - Overdose [Unknown]
  - Contraindicated product administered [Unknown]
  - Product administered at inappropriate site [Unknown]

NARRATIVE: CASE EVENT DATE: 20180207
